FAERS Safety Report 6963251-8 (Version None)
Quarter: 2010Q3

REPORT INFORMATION
  Report Type: 
  Country: None (occurrence: None)
  Receive Date: 20100902
  Receipt Date: 20100823
  Transmission Date: 20110219
  Serious: Yes (Death)
  Sender: FDA-Public Use
  Company Number: US-BAXTER-2010BH021595

PATIENT
  Age: 32 Year
  Sex: Male
  Weight: 83 kg

DRUGS (8)
  1. FEIBA [Suspect]
     Indication: FACTOR VIII DEFICIENCY
     Route: 042
  2. FEIBA [Suspect]
     Indication: FACTOR VIII INHIBITION
     Route: 042
  3. HYDROMORPHONE [Concomitant]
     Indication: PAIN
     Route: 048
  4. CASPOFUNGIN [Concomitant]
     Indication: CANDIDIASIS
     Route: 042
     Dates: start: 20100705
  5. LASIX [Concomitant]
     Indication: FLUID OVERLOAD
     Route: 048
     Dates: start: 20100713
  6. DIPHENHYDRAMINE HCL [Concomitant]
     Indication: ALLERGY PROPHYLAXIS
     Route: 048
  7. BUDESONIDE [Concomitant]
     Route: 055
     Dates: start: 20100710
  8. ESOMEPRAZOLE MAGNESIUM [Concomitant]
     Indication: PROPHYLAXIS
     Route: 048

REACTIONS (2)
  - CARDIOPULMONARY FAILURE [None]
  - MULTI-ORGAN FAILURE [None]
